FAERS Safety Report 20418085 (Version 2)
Quarter: 2022Q1

REPORT INFORMATION
  Report Type: Spontaneous
  Country: FR (occurrence: FR)
  Receive Date: 20220202
  Receipt Date: 20220210
  Transmission Date: 20220423
  Serious: Yes (Disabling, Other)
  Sender: FDA-Public Use
  Company Number: FR-SANOFI-00948294

PATIENT
  Age: 47 Year
  Sex: Female

DRUGS (3)
  1. DUPIXENT [Suspect]
     Active Substance: DUPILUMAB
     Indication: Dermatitis atopic
     Dosage: 600 MG, 1X
  2. DUPIXENT [Suspect]
     Active Substance: DUPILUMAB
     Dosage: 300 MG, QOW
     Dates: start: 20211208
  3. COVID-19 VACCINE [Concomitant]
     Indication: Immunisation
     Dosage: UNK

REACTIONS (5)
  - Rheumatic fever [Not Recovered/Not Resolved]
  - Walking disability [Not Recovered/Not Resolved]
  - Arthropathy [Not Recovered/Not Resolved]
  - Arthralgia [Not Recovered/Not Resolved]
  - Rheumatic disorder [Unknown]

NARRATIVE: CASE EVENT DATE: 20220120
